FAERS Safety Report 4732984-6 (Version None)
Quarter: 2005Q3

REPORT INFORMATION
  Report Type: 
  Country: None (occurrence: None)
  Receive Date: 20050725
  Receipt Date: 20040527
  Transmission Date: 20060218
  Serious: Yes (Hospitalization)
  Sender: FDA-Public Use
  Company Number: WAES 0405USA02051

PATIENT
  Age: 65 Year
  Sex: Female

DRUGS (3)
  1. VIOXX [Suspect]
     Dosage: PO
     Route: 048
  2. ARAVA [Concomitant]
  3. DETROL LA [Concomitant]

REACTIONS (2)
  - HYPERTENSION [None]
  - RENAL FAILURE ACUTE [None]
